FAERS Safety Report 16752337 (Version 1)
Quarter: 2019Q3

REPORT INFORMATION
  Report Type: Report from Study
  Country: GB (occurrence: GB)
  Receive Date: 20190828
  Receipt Date: 20190828
  Transmission Date: 20191005
  Serious: Yes (Other)
  Sender: FDA-Public Use
  Company Number: PHHY2019GB197061

PATIENT
  Sex: Male

DRUGS (1)
  1. HYRIMOZ [Suspect]
     Active Substance: ADALIMUMAB-ADAZ
     Indication: PSORIATIC ARTHROPATHY
     Dosage: UNK UNK, Q2W
     Route: 065
     Dates: start: 20190806

REACTIONS (8)
  - Seasonal allergy [Unknown]
  - Sneezing [Unknown]
  - Feeling hot [Unknown]
  - Feeling cold [Unknown]
  - Rhinorrhoea [Unknown]
  - Nasal congestion [Unknown]
  - Agitation [Unknown]
  - Cough [Unknown]
